FAERS Safety Report 7583875-7 (Version None)
Quarter: 2011Q2

REPORT INFORMATION
  Report Type: 
  Country: None (occurrence: None)
  Receive Date: 20110531
  Receipt Date: 20100426
  Transmission Date: 20111010
  Serious: Yes (Hospitalization, Other)
  Sender: FDA-Public Use
  Company Number: 250513

PATIENT
  Age: 58 Year
  Sex: Female
  Weight: 53.5 kg

DRUGS (19)
  1. GLUCOSAMINE (GLUCOSAMINE) [Concomitant]
  2. PREMPHASE (PREMARIN;CYCRIN 14/14) [Suspect]
     Indication: HORMONE REPLACEMENT THERAPY
     Dates: start: 20000914, end: 20010326
  3. VOLTAREN [Concomitant]
  4. IBUPROFEN [Concomitant]
  5. METHOTREXATE [Concomitant]
  6. PREMPRO [Suspect]
     Indication: HORMONE REPLACEMENT THERAPY
     Dosage: 0.625 MG/2.5 MG ; 0.625 MG/2.5 MG
     Dates: start: 19900316, end: 19910318
  7. PREMPRO [Suspect]
     Indication: HORMONE REPLACEMENT THERAPY
     Dosage: 0.625 MG/2.5 MG ; 0.625 MG/2.5 MG
     Dates: start: 20000301, end: 20000501
  8. PREMARIN [Suspect]
     Indication: HORMONE REPLACEMENT THERAPY
     Dosage: 0.625 MG
     Dates: start: 19970101, end: 19980713
  9. FOLIC ACID [Concomitant]
  10. MICRONOR [Concomitant]
  11. MEDROXYPROGESTERONE [Suspect]
     Indication: MENOPAUSAL SYMPTOMS
     Dosage: 2.5 MG
     Dates: start: 19980122, end: 19980122
  12. OGEN [Suspect]
     Indication: HORMONE REPLACEMENT THERAPY
     Dosage: 1.25 MG
     Dates: start: 19900316, end: 19910318
  13. EFFEXOR XR [Concomitant]
  14. ACTIVELLA [Suspect]
     Indication: MENOPAUSAL SYMPTOMS
     Dosage: 84 TAB
     Dates: start: 20010808, end: 20030724
  15. PROVERA [Suspect]
     Indication: HORMONE REPLACEMENT THERAPY
     Dosage: 10 MG ; 5 MG
     Dates: start: 19900701, end: 19900901
  16. PROVERA [Suspect]
     Indication: HORMONE REPLACEMENT THERAPY
     Dosage: 10 MG ; 5 MG
     Dates: start: 19900301, end: 19900701
  17. METHYLPREDNISOLONE [Concomitant]
  18. PREDNISONE [Concomitant]
  19. VIOXX [Concomitant]

REACTIONS (1)
  - BREAST CANCER [None]
